FAERS Safety Report 18081157 (Version 4)
Quarter: 2020Q4

REPORT INFORMATION
  Report Type: Other
  Country: US (occurrence: US)
  Receive Date: 20200728
  Receipt Date: 20201016
  Transmission Date: 20210113
  Serious: Yes (Hospitalization, Other)
  Sender: FDA-Public Use
  Company Number: US-ROCHE-2645234

PATIENT
  Age: 60 Year
  Sex: Female
  Weight: 81.72 kg

DRUGS (1)
  1. OCREVUS [Suspect]
     Active Substance: OCRELIZUMAB
     Indication: PRIMARY PROGRESSIVE MULTIPLE SCLEROSIS
     Dosage: ON 26/MAR/2018, 26/SEP/2018, 13/MAR/2019, 11/SEP/2019, 18/MAR/2020, RECEIVED OCRELIZUMAB OF AN UNKN
     Route: 042
     Dates: start: 201709

REACTIONS (2)
  - Urinary tract infection [Recovered/Resolved]
  - Cellulitis [Recovered/Resolved]

NARRATIVE: CASE EVENT DATE: 202006
